FAERS Safety Report 6599631-2 (Version None)
Quarter: 2010Q1

REPORT INFORMATION
  Report Type: 
  Country: None (occurrence: None)
  Receive Date: 20100224
  Receipt Date: 20100218
  Transmission Date: 20100710
  Serious: Yes (Death)
  Sender: FDA-Public Use
  Company Number: US-WYE-H13732910

PATIENT
  Age: 81 Year
  Sex: Female

DRUGS (4)
  1. CORDARONE [Suspect]
     Dosage: UNSPECIFIED ACUTE-ON-CHRONIC EXPOSURE
     Dates: start: 20080101
  2. HYDROCODONE BITARTRATE AND ACETAMINOPHEN [Suspect]
     Dosage: UNSPECIFIED ACUTE-ON-CHRONIC EXPOSURE
     Dates: start: 20080101
  3. MORPHINE [Suspect]
     Dosage: UNSPECIFIED ACUTE-ON-CHRONIC EXPOSURE
     Dates: start: 20080101
  4. DILTIAZEM HCL [Suspect]
     Dosage: UNSPECIFIED ACUTE-ON-CHRONIC EXPOSURE
     Dates: start: 20080101

REACTIONS (1)
  - COMPLETED SUICIDE [None]
